FAERS Safety Report 6467537-5 (Version None)
Quarter: 2009Q4

REPORT INFORMATION
  Report Type: 
  Country: None (occurrence: None)
  Receive Date: 20091202
  Receipt Date: 20091118
  Transmission Date: 20100525
  Serious: Yes (Life-Threatening, Hospitalization, Other)
  Sender: FDA-Public Use
  Company Number: GB-MYLANLABS-2009S1019997

PATIENT
  Age: 61 Year
  Sex: Male
  Weight: 116 kg

DRUGS (15)
  1. LANSOPRAZOLE [Suspect]
     Indication: OESOPHAGITIS
     Route: 048
     Dates: start: 20070226, end: 20091016
  2. ADCAL /00056901/ [Concomitant]
     Indication: DRUG USE FOR UNKNOWN INDICATION
     Dates: start: 20091014
  3. ALFACALCIDOL [Concomitant]
     Indication: CALCIUM DEFICIENCY
     Dates: start: 20091006
  4. AMITRIPTYLINE HYDROCHLORIDE [Concomitant]
     Indication: DRUG USE FOR UNKNOWN INDICATION
     Dates: start: 20011217
  5. AMOXICILLIN [Concomitant]
     Indication: BRONCHITIS
     Dates: end: 20090731
  6. ANGITIL [Concomitant]
     Indication: HYPERTENSION
     Dates: start: 20070813
  7. ASPIRIN [Concomitant]
     Indication: CARDIOVASCULAR EVENT PROPHYLAXIS
     Dates: start: 20051007
  8. ENZIRA [Concomitant]
     Indication: DRUG USE FOR UNKNOWN INDICATION
     Dates: start: 20091008
  9. EZETIMIBE [Concomitant]
     Indication: HYPERCHOLESTEROLAEMIA
     Dates: start: 20060710
  10. HUMALOG [Concomitant]
     Indication: DRUG USE FOR UNKNOWN INDICATION
     Dates: start: 20061115
  11. LANTUS [Concomitant]
     Indication: DRUG USE FOR UNKNOWN INDICATION
     Dates: start: 20061115
  12. METFORMIN HYDROCHLORIDE [Concomitant]
     Indication: DRUG USE FOR UNKNOWN INDICATION
     Dates: start: 20090119
  13. QUININE SULPHATE [Concomitant]
     Indication: DRUG USE FOR UNKNOWN INDICATION
     Dates: start: 20040202
  14. RAMIPRIL [Concomitant]
     Indication: HYPERTENSION
     Dates: start: 20060710
  15. RANITIDINE [Concomitant]
     Indication: OESOPHAGITIS
     Dates: start: 20091015

REACTIONS (2)
  - HYPOCALCAEMIA [None]
  - HYPOMAGNESAEMIA [None]
